APPROVED DRUG PRODUCT: FEBUXOSTAT
Active Ingredient: FEBUXOSTAT
Strength: 80MG
Dosage Form/Route: TABLET;ORAL
Application: A205406 | Product #002
Applicant: LUPIN LTD
Approved: Jan 17, 2024 | RLD: No | RS: No | Type: DISCN